FAERS Safety Report 17132879 (Version 1)
Quarter: 2019Q4

REPORT INFORMATION
  Report Type: Spontaneous
  Country: US (occurrence: US)
  Receive Date: 20191210
  Receipt Date: 20191210
  Transmission Date: 20200122
  Serious: Yes (Life-Threatening, Other)
  Sender: FDA-Public Use
  Company Number: US-AMGEN-USASP2019204323

PATIENT

DRUGS (2)
  1. CARFILZOMIB [Suspect]
     Active Substance: CARFILZOMIB
     Indication: PLASMA CELL MYELOMA
     Dosage: UNK
     Route: 065
  2. BORTEZOMIB. [Suspect]
     Active Substance: BORTEZOMIB
     Indication: PLASMA CELL MYELOMA
     Dosage: UNK
     Route: 065

REACTIONS (7)
  - Atrial flutter [Unknown]
  - Cardiac failure [Unknown]
  - Pulmonary hypertension [Unknown]
  - Hypertension [Unknown]
  - Acute coronary syndrome [Unknown]
  - Atrial fibrillation [Unknown]
  - Embolism [Unknown]
